FAERS Safety Report 4730247-6 (Version None)
Quarter: 2005Q3

REPORT INFORMATION
  Report Type: 
  Country: None (occurrence: None)
  Receive Date: 20050729
  Receipt Date: 20050729
  Transmission Date: 20060218
  Serious: Yes (Other)
  Sender: FDA-Public Use
  Company Number: None

PATIENT
  Age: 34 Year
  Sex: Female

DRUGS (1)
  1. AQUIFY CONTACT LENS SOLUTION [Suspect]
     Dosage: END OF DAY LENS CARE TOPICAL
     Route: 061
     Dates: start: 20050601, end: 20050701

REACTIONS (2)
  - CONTACT LENS COMPLICATION [None]
  - PHARMACEUTICAL PRODUCT COMPLAINT [None]
